FAERS Safety Report 7246045-8 (Version None)
Quarter: 2011Q1

REPORT INFORMATION
  Report Type: 
  Country: None (occurrence: None)
  Receive Date: 20110126
  Receipt Date: 20110118
  Transmission Date: 20110831
  Serious: Yes (Hospitalization)
  Sender: FDA-Public Use
  Company Number: A0901228A

PATIENT
  Age: 61 Year
  Sex: Female

DRUGS (4)
  1. OFATUMUMAB [Suspect]
     Route: 042
     Dates: start: 20100920
  2. CYCLOPHOSPHAMIDE [Suspect]
  3. NEUPOGEN [Concomitant]
  4. FLUDARABINE [Suspect]

REACTIONS (3)
  - DIARRHOEA [None]
  - JUGULAR VEIN THROMBOSIS [None]
  - FEBRILE NEUTROPENIA [None]
